FAERS Safety Report 8242527-0 (Version None)
Quarter: 2012Q1

REPORT INFORMATION
  Report Type: 
  Country: None (occurrence: None)
  Receive Date: 20120329
  Receipt Date: 20120319
  Transmission Date: 20120608
  Serious: Yes (Other)
  Sender: FDA-Public Use
  Company Number: ES-TEVA-328957ISR

PATIENT
  Age: 35 Year
  Sex: Female
  Weight: 56 kg

DRUGS (4)
  1. AMOXICILLIN AND CLAVULANATE POTASSIUM [Concomitant]
     Dosage: 3 DOSAGE FORMS; DF=AMOXICILLIN 875MG, CLAVULANIC ACID 125 MG
     Route: 065
  2. RIBAVIRIN [Suspect]
     Indication: HEPATITIS C
     Dosage: 800 MILLIGRAM;
     Route: 065
     Dates: start: 20081001
  3. TAMIFLU [Interacting]
     Indication: INFLUENZA
     Dosage: 150 MILLIGRAM;
     Route: 065
  4. PEGINTERFERON ALFA-2B [Concomitant]
     Indication: HEPATITIS C
     Dosage: 80 MICROG/WEEK
     Route: 065
     Dates: start: 20081001

REACTIONS (2)
  - ANAEMIA [None]
  - DRUG INTERACTION [None]
